FAERS Safety Report 25719933 (Version 5)
Quarter: 2025Q3

REPORT INFORMATION
  Report Type: Spontaneous
  Country: EU (occurrence: EU)
  Receive Date: 20250825
  Receipt Date: 20250918
  Transmission Date: 20251021
  Serious: Yes (Hospitalization, Other)
  Sender: AUROBINDO
  Company Number: EU-AUROBINDO-AUR-APL-2025-043110

PATIENT
  Age: 74 Year
  Sex: Female

DRUGS (4)
  1. IMATINIB [Suspect]
     Active Substance: IMATINIB
     Indication: Chronic myeloid leukaemia
     Route: 065
  2. ALBUMIN HUMAN [Concomitant]
     Active Substance: ALBUMIN HUMAN
     Indication: Product used for unknown indication
     Route: 065
  3. FUROSEMIDE [Concomitant]
     Active Substance: FUROSEMIDE
     Indication: Cardiac failure acute
     Route: 042
  4. METOLAZONE [Concomitant]
     Active Substance: METOLAZONE
     Indication: Cardiac failure acute
     Route: 065

REACTIONS (13)
  - Acute kidney injury [Recovered/Resolved]
  - Generalised oedema [Recovered/Resolved]
  - Hypoalbuminaemia [Unknown]
  - Hypotension [Unknown]
  - Cardiac failure acute [Recovered/Resolved]
  - Anuria [Recovered/Resolved]
  - Ascites [Unknown]
  - Dyspnoea [Unknown]
  - Blood creatinine increased [Recovered/Resolved]
  - Blood urea increased [Recovered/Resolved]
  - N-terminal prohormone brain natriuretic peptide increased [Unknown]
  - Oedema [Recovered/Resolved]
  - Rales [Unknown]
